FAERS Safety Report 5261446-5 (Version None)
Quarter: 2007Q1

REPORT INFORMATION
  Report Type: 
  Country: None (occurrence: None)
  Receive Date: 20070307
  Receipt Date: 20070220
  Transmission Date: 20070707
  Serious: Yes (Hospitalization, Disabling, Other)
  Sender: FDA-Public Use
  Company Number: 2007JP000231

PATIENT
  Age: 75 Year
  Sex: Female

DRUGS (8)
  1. PROGRAF [Suspect]
     Indication: RHEUMATOID ARTHRITIS
     Dosage: 2 MG, UID/QD, ORAL
     Route: 048
     Dates: start: 20040401, end: 20070114
  2. PREDNISOLONE (PREDNISOLONE) TABLET, 1 MG [Concomitant]
  3. ONEALFA (ALFACALCIDOL) TABLET, 1 UG [Concomitant]
  4. HYPEN (ETODOLAC) TABLET, 200 MG [Concomitant]
  5. DEPROMEL (FLUVOXAMINE) TABLET, 25 MG [Concomitant]
  6. LENDORMIN (BROTIZOLAM) TABLET, 0.25 MG [Concomitant]
  7. ALMARL (AROTINOLOL HYDROCHLORIDE) TABLET, 10 MG [Concomitant]
  8. EC DOPARL (BENSERAZIDE HYDROCHLORIDE) TABLET [Concomitant]

REACTIONS (5)
  - DISSEMINATED INTRAVASCULAR COAGULATION [None]
  - PYELONEPHRITIS [None]
  - RENAL FAILURE [None]
  - SEPSIS [None]
  - THROMBOTIC THROMBOCYTOPENIC PURPURA [None]
